FAERS Safety Report 9509536 (Version 1)
Quarter: 2013Q3

REPORT INFORMATION
  Report Type: Spontaneous
  Country: US (occurrence: US)
  Receive Date: 20130909
  Receipt Date: 20130909
  Transmission Date: 20140515
  Serious: No
  Sender: FDA-Public Use
  Company Number: US-BRISTOL-MYERS SQUIBB COMPANY-17255332

PATIENT
  Age: 54 Year
  Sex: Female
  Weight: 56.69 kg

DRUGS (4)
  1. ABILIFY TABS 5 MG [Suspect]
     Indication: AFFECTIVE DISORDER
     Dosage: 1 DF: 1/2 TAB.
     Dates: start: 20120620
  2. ABILIFY TABS 5 MG [Suspect]
     Indication: ATTENTION DEFICIT/HYPERACTIVITY DISORDER
     Dosage: 1 DF: 1/2 TAB.
     Dates: start: 20120620
  3. ABILIFY TABS 5 MG [Suspect]
     Indication: MAJOR DEPRESSION
     Dosage: 1 DF: 1/2 TAB.
     Dates: start: 20120620
  4. PRILOSEC [Suspect]

REACTIONS (2)
  - Dyspepsia [Recovered/Resolved]
  - Hiccups [Recovered/Resolved]
